FAERS Safety Report 11745519 (Version 1)
Quarter: 2015Q4

REPORT INFORMATION
  Report Type: Spontaneous
  Country: US (occurrence: None)
  Receive Date: 20151116
  Receipt Date: 20151116
  Transmission Date: 20160304
  Serious: No
  Sender: FDA-Public Use
  Company Number: None

PATIENT
  Age: 70 Year
  Sex: Female
  Weight: 63.05 kg

DRUGS (8)
  1. SYNTHROID [Concomitant]
     Active Substance: LEVOTHYROXINE SODIUM
  2. INSULIN [Concomitant]
     Active Substance: INSULIN NOS
  3. HUMULIN NOS [Concomitant]
     Active Substance: INSULIN HUMAN
  4. LOVASTATIN. [Concomitant]
     Active Substance: LOVASTATIN
  5. CALCIUM [Concomitant]
     Active Substance: CALCIUM
  6. LOSARTAN POTASSIUM 25 MG FILM-COATED TABLETS [Suspect]
     Active Substance: LOSARTAN POTASSIUM
     Indication: PROTEIN URINE PRESENT
     Dosage: BY MOUTH
     Dates: start: 20151029, end: 20151101
  7. ASPIRIN. [Concomitant]
     Active Substance: ASPIRIN
  8. VITAMIN D [Concomitant]
     Active Substance: CHOLECALCIFEROL

REACTIONS (5)
  - Fatigue [None]
  - Dyspepsia [None]
  - Dizziness [None]
  - Hypotension [None]
  - Dysuria [None]

NARRATIVE: CASE EVENT DATE: 20151029
